FAERS Safety Report 10420030 (Version 2)
Quarter: 2014Q3

REPORT INFORMATION
  Report Type: Report from Study
  Country: DE (occurrence: NL)
  Receive Date: 20140829
  Receipt Date: 20140829
  Transmission Date: 20150326
  Serious: Yes (Death, Hospitalization, Other)
  Sender: FDA-Public Use
  Company Number: DE-ACTELION-A-US2012-73029

PATIENT
  Age: 53 Year
  Sex: Male

DRUGS (16)
  1. REVATIO [Concomitant]
     Active Substance: SILDENAFIL CITRATE
  2. RISEDRONIC ACID [Concomitant]
     Active Substance: RISEDRONIC ACID
  3. CLOPIDOGREL [Concomitant]
     Active Substance: CLOPIDOGREL BISULFATE
  4. SYMBICORT [Concomitant]
     Active Substance: BUDESONIDE\FORMOTEROL FUMARATE DIHYDRATE
     Dosage: UNK
  5. VENTAVIS [Suspect]
     Active Substance: ILOPROST
     Indication: PULMONARY ARTERIAL HYPERTENSION
     Dosage: 5 ?G, 6X DAY
     Route: 055
     Dates: start: 20120712
  6. LEKOVIT CA [Concomitant]
     Active Substance: CALCIUM CARBONATE\CHOLECALCIFEROL
  7. NEBIVOLOL [Concomitant]
     Active Substance: NEBIVOLOL
  8. ASPIRIN. [Concomitant]
     Active Substance: ASPIRIN
     Dosage: 80 MG, UNK
  9. CALCICHEW D3 [Concomitant]
     Active Substance: CALCIUM\CHOLECALCIFEROL
  10. FUROSEMIDE. [Concomitant]
     Active Substance: FUROSEMIDE
  11. MAGNESIUM HYDROXIDE. [Concomitant]
     Active Substance: MAGNESIUM HYDROXIDE
  12. LIPITOR [Concomitant]
     Active Substance: ATORVASTATIN CALCIUM
     Dosage: 40 MG, UNK
  13. TRACLEER [Suspect]
     Active Substance: BOSENTAN\BOSENTAN MONOHYDRATE
     Indication: PULMONARY ARTERIAL HYPERTENSION
     Dosage: 125 MG, UNK
     Route: 048
     Dates: start: 20130206, end: 20140808
  14. ZANTAC [Concomitant]
     Active Substance: RANITIDINE HYDROCHLORIDE
     Dosage: 50 MG, BID
  15. PANTOPRAZOLE [Concomitant]
     Active Substance: PANTOPRAZOLE SODIUM
  16. NADROPARIN [Concomitant]
     Active Substance: NADROPARIN

REACTIONS (8)
  - Infection [Fatal]
  - Pulmonary fibrosis [Recovered/Resolved]
  - Condition aggravated [Recovered/Resolved]
  - Pneumonia [Recovered/Resolved]
  - Bronchospasm [Unknown]
  - Pulmonary arterial hypertension [Fatal]
  - Oedema [Recovered/Resolved]
  - Pain in extremity [Unknown]

NARRATIVE: CASE EVENT DATE: 201207
